FAERS Safety Report 9455244 (Version 1)
Quarter: 2013Q3

REPORT INFORMATION
  Report Type: Spontaneous
  Country: FR (occurrence: None)
  Receive Date: 20130722
  Receipt Date: 20130722
  Transmission Date: 20140515
  Serious: Yes (Other)
  Sender: FDA-Public Use
  Company Number: 221944

PATIENT
  Age: 61 Year
  Sex: Female
  Weight: 53 kg

DRUGS (4)
  1. INNOHEP [Suspect]
     Indication: PROPHYLAXIS
     Route: 058
     Dates: start: 201202, end: 20120208
  2. REVLIMID [Suspect]
     Indication: PLASMA CELL MYELOMA
     Dosage: D1, D21, ORAL
     Route: 048
     Dates: start: 201111
  3. DEXAMETHASONE [Suspect]
     Indication: PLASMA CELL MYELOMA
     Route: 048
     Dates: start: 201111, end: 20120720
  4. VELCADE (BORTEZOMIB) [Concomitant]

REACTIONS (3)
  - Venous thrombosis limb [None]
  - Incorrect drug administration duration [None]
  - Off label use [None]
